FAERS Safety Report 5473323-5 (Version None)
Quarter: 2007Q4

REPORT INFORMATION
  Report Type: 
  Country: None (occurrence: None)
  Receive Date: 20071001
  Receipt Date: 20070920
  Transmission Date: 20080405
  Serious: Yes (Hospitalization)
  Sender: FDA-Public Use
  Company Number: US-JNJFOC-20070904786

PATIENT
  Sex: Male
  Weight: 61.24 kg

DRUGS (1)
  1. DURAGESIC-100 [Suspect]
     Indication: PAIN
     Route: 062

REACTIONS (4)
  - CARDIAC FAILURE [None]
  - HOSPITALISATION [None]
  - HYPOTENSION [None]
  - RENAL FAILURE [None]
